FAERS Safety Report 10588997 (Version 3)
Quarter: 2015Q1

REPORT INFORMATION
  Report Type: Spontaneous
  Country: US (occurrence: US)
  Receive Date: 20141117
  Receipt Date: 20150128
  Transmission Date: 20150720
  Serious: Yes (Other)
  Sender: FDA-Public Use
  Company Number: US-DRREDDYS-USA/USA/14/0044401

PATIENT
  Age: 26 Year
  Sex: Female
  Weight: 81.19 kg

DRUGS (3)
  1. NUVARING [Concomitant]
     Active Substance: ETHINYL ESTRADIOL\ETONOGESTREL
     Indication: PRODUCT USED FOR UNKNOWN INDICATION
     Dosage: PLACE 1 EACH VAGINALLY AND LEAVE IN PLACE FOR 3 CONSECUTIVE WEEKS, THEN REMOVE FOR 1 WEEK.
     Route: 067
  2. ZENATANE [Suspect]
     Active Substance: ISOTRETINOIN
     Indication: PRODUCT USED FOR UNKNOWN INDICATION
     Route: 048
     Dates: start: 20140911
  3. GLUCOPHAGE [Concomitant]
     Active Substance: METFORMIN HYDROCHLORIDE
     Indication: PRODUCT USED FOR UNKNOWN INDICATION
     Route: 048

REACTIONS (3)
  - Vaginal haemorrhage [Unknown]
  - Exposure during pregnancy [Unknown]
  - Pregnancy test false positive [Unknown]

NARRATIVE: CASE EVENT DATE: 20141114
